FAERS Safety Report 14072326 (Version 1)
Quarter: 2017Q4

REPORT INFORMATION
  Report Type: Spontaneous
  Country: US (occurrence: US)
  Receive Date: 20171010
  Receipt Date: 20171010
  Transmission Date: 20180321
  Serious: No
  Sender: FDA-Public Use
  Company Number: US-SA-2017SA182699

PATIENT
  Age: 53 Year
  Sex: Female

DRUGS (6)
  1. VITAMIN D3 [Concomitant]
     Active Substance: CHOLECALCIFEROL
  2. ZYRTEC [Concomitant]
     Active Substance: CETIRIZINE HYDROCHLORIDE
  3. DUPIXENT [Suspect]
     Active Substance: DUPILUMAB
     Indication: DERMATITIS ATOPIC
     Route: 058
     Dates: start: 201709
  4. OCUVITE [Concomitant]
     Active Substance: VITAMINS
  5. FISH OIL [Concomitant]
     Active Substance: FISH OIL
  6. POTASSIUM [Concomitant]
     Active Substance: POTASSIUM

REACTIONS (2)
  - Eye pain [Recovering/Resolving]
  - Tenderness [Recovering/Resolving]

NARRATIVE: CASE EVENT DATE: 201709
